FAERS Safety Report 13939690 (Version 1)
Quarter: 2017Q3

REPORT INFORMATION
  Report Type: Spontaneous
  Country: JP (occurrence: JP)
  Receive Date: 20170906
  Receipt Date: 20170906
  Transmission Date: 20171127
  Serious: Yes (Life-Threatening, Hospitalization, Other)
  Sender: FDA-Public Use
  Company Number: JP-ELI_LILLY_AND_COMPANY-JP201708005587

PATIENT
  Age: 81 Year
  Sex: Female
  Weight: 43 kg

DRUGS (4)
  1. AZILVA [Concomitant]
     Active Substance: AZILSARTAN KAMEDOXOMIL
     Indication: HYPERTENSION
     Dosage: 20 MG, DAILY
     Route: 048
     Dates: start: 20170508
  2. JUZENTAIHOTO                       /07985601/ [Concomitant]
     Active Substance: HERBALS
     Indication: BONE MARROW FAILURE
     Dosage: 7.5 G, DAILY
     Route: 048
     Dates: start: 20170608
  3. CYRAMZA [Suspect]
     Active Substance: RAMUCIRUMAB
     Indication: ADENOCARCINOMA GASTRIC
     Dosage: 320 MG, OTHER
     Route: 041
     Dates: start: 20170306, end: 20170727
  4. PACLITAXEL. [Concomitant]
     Active Substance: PACLITAXEL
     Indication: ADENOCARCINOMA GASTRIC
     Dosage: 100 MG, OTHER
     Route: 041
     Dates: start: 20170306, end: 20170727

REACTIONS (3)
  - Shock haemorrhagic [Unknown]
  - Gastric perforation [Recovering/Resolving]
  - Pneumonia [Unknown]

NARRATIVE: CASE EVENT DATE: 20170805
